FAERS Safety Report 20741731 (Version 2)
Quarter: 2022Q2

REPORT INFORMATION
  Report Type: Report from Study
  Country: AU (occurrence: AU)
  Receive Date: 20220423
  Receipt Date: 20220602
  Transmission Date: 20220721
  Serious: Yes (Death, Hospitalization, Other)
  Sender: FDA-Public Use
  Company Number: AU-ABBVIE-22K-008-4368060-00

PATIENT
  Sex: Male

DRUGS (1)
  1. RINVOQ [Suspect]
     Active Substance: UPADACITINIB
     Indication: Dermatitis atopic
     Route: 048

REACTIONS (10)
  - Death [Fatal]
  - Fall [Unknown]
  - Chills [Unknown]
  - Dyspnoea [Unknown]
  - Bradycardia [Unknown]
  - Staphylococcal sepsis [Unknown]
  - Pyrexia [Unknown]
  - Pain in extremity [Unknown]
  - Pulse absent [Unknown]
  - General physical health deterioration [Unknown]

NARRATIVE: CASE EVENT DATE: 20220101
